FAERS Safety Report 6911523-5 (Version None)
Quarter: 2010Q3

REPORT INFORMATION
  Report Type: 
  Country: None (occurrence: None)
  Receive Date: 20100806
  Receipt Date: 20100728
  Transmission Date: 20110219
  Serious: Yes (Hospitalization)
  Sender: FDA-Public Use
  Company Number: FR-GILEAD-2010-0030726

PATIENT
  Sex: Male

DRUGS (20)
  1. TRUVADA [Suspect]
     Indication: HIV INFECTION
     Route: 048
     Dates: start: 20090701, end: 20100427
  2. VIRAMUNE [Suspect]
     Indication: HIV INFECTION
     Route: 048
     Dates: start: 20011101, end: 20020301
  3. VIRAMUNE [Suspect]
     Dates: start: 20020301, end: 20081201
  4. VIRAMUNE [Suspect]
     Dates: start: 20081215, end: 20090331
  5. VIRAMUNE [Suspect]
     Dates: end: 20090601
  6. VIRAMUNE [Suspect]
     Dates: start: 20090701, end: 20100427
  7. VIRAMUNE [Suspect]
     Dates: start: 20100428
  8. PANTOPRAZOLE SODIUM [Suspect]
     Indication: PROPHYLAXIS
     Route: 048
     Dates: start: 20070101
  9. HYZAAR [Suspect]
     Indication: HYPERTENSION
     Route: 048
     Dates: start: 20070701
  10. COZAAR [Suspect]
     Indication: HYPERTENSION
     Route: 048
     Dates: start: 20030731, end: 20051221
  11. FORTZAAR [Suspect]
     Indication: HYPERTENSION
     Route: 048
     Dates: start: 20051222, end: 20070701
  12. CEBUTID [Concomitant]
     Indication: SCIATICA
  13. KARDEGIC [Concomitant]
  14. ESCITALOPRAM OXALATE [Concomitant]
  15. ATHYMIL [Concomitant]
  16. ALPRAZOLAM [Concomitant]
  17. ZOLPIDEM [Concomitant]
  18. TERCIAN [Concomitant]
  19. TOPALGIC [Concomitant]
  20. DOLIPRANE [Concomitant]

REACTIONS (2)
  - OSTEOARTHRITIS [None]
  - PARALYSIS [None]
